FAERS Safety Report 14794058 (Version 1)
Quarter: 2018Q2

REPORT INFORMATION
  Report Type: Spontaneous
  Country: DE (occurrence: DE)
  Receive Date: 20180423
  Receipt Date: 20180423
  Transmission Date: 20180711
  Serious: Yes (Other)
  Sender: FDA-Public Use
  Company Number: DE-009507513-1804DEU006677

PATIENT
  Age: 22 Year
  Sex: Female

DRUGS (5)
  1. DIAZEPAM. [Suspect]
     Active Substance: DIAZEPAM
  2. BEFURALINE [Suspect]
     Active Substance: BEFURALINE
  3. METHYLON [Suspect]
     Active Substance: METHYLPREDNISOLONE
  4. MIRTAZAPINE. [Suspect]
     Active Substance: MIRTAZAPINE
  5. NORDAZEPAM [Suspect]
     Active Substance: NORDAZEPAM

REACTIONS (4)
  - Aggression [None]
  - Toxicity to various agents [None]
  - Toxicity to various agents [Unknown]
  - Psychotic disorder [None]
